FAERS Safety Report 5794592-8 (Version None)
Quarter: 2008Q2

REPORT INFORMATION
  Report Type: 
  Country: None (occurrence: None)
  Receive Date: 20080625
  Receipt Date: 20080616
  Transmission Date: 20081010
  Serious: Yes (Death)
  Sender: FDA-Public Use
  Company Number: 08P-178-0457135-00

PATIENT

DRUGS (2)
  1. SYNAGIS [Suspect]
     Indication: PROPHYLAXIS
     Dosage: 100 MG, 1 IN 1 M
     Dates: start: 20080501
  2. SYNAGIS [Suspect]
     Indication: RESPIRATORY DISORDER
     Dosage: 100 MG, 1 IN 1 M
     Dates: start: 20080501

REACTIONS (1)
  - DEATH [None]
